FAERS Safety Report 6273395-4 (Version None)
Quarter: 2009Q3

REPORT INFORMATION
  Report Type: 
  Country: None (occurrence: None)
  Receive Date: 20090715
  Receipt Date: 20090703
  Transmission Date: 20100115
  Serious: Yes (Other)
  Sender: FDA-Public Use
  Company Number: SPV1-2009-01384

PATIENT
  Age: 20 Year
  Sex: Male

DRUGS (1)
  1. XAGRID         (ANAGREDLIDE HYDROCHLORIDE) [Suspect]
     Dosage: 50 MG, ONE DOSE, ORAL
     Route: 048

REACTIONS (2)
  - INTENTIONAL OVERDOSE [None]
  - SUICIDE ATTEMPT [None]
